FAERS Safety Report 25824016 (Version 1)
Quarter: 2025Q3

REPORT INFORMATION
  Report Type: Spontaneous
  Country: US (occurrence: US)
  Receive Date: 20250919
  Receipt Date: 20250919
  Transmission Date: 20251021
  Serious: Yes (Other)
  Sender: ALEXION PHARMACEUTICALS
  Company Number: US-ASTRAZENECA-202509GLO011115US

PATIENT
  Sex: Male

DRUGS (15)
  1. NEXIUM [Suspect]
     Active Substance: ESOMEPRAZOLE MAGNESIUM
  2. SOMA [Concomitant]
     Active Substance: CARISOPRODOL
  3. MELOXICAM [Concomitant]
     Active Substance: MELOXICAM
  4. OMEPRAZOLE [Concomitant]
     Active Substance: OMEPRAZOLE
  5. FLOMAX [Concomitant]
     Active Substance: TAMSULOSIN HYDROCHLORIDE
  6. LIPITOR [Concomitant]
     Active Substance: ATORVASTATIN CALCIUM
  7. RANEXA [Concomitant]
     Active Substance: RANOLAZINE
  8. ASPIRIN [Concomitant]
     Active Substance: ASPIRIN
  9. PANTOPRAZOLE [Concomitant]
     Active Substance: PANTOPRAZOLE
  10. SACCHAROMYCES CEREVISIAE [Concomitant]
     Active Substance: SACCHAROMYCES CEREVISIAE
  11. HYOSCYAMINE [Concomitant]
     Active Substance: HYOSCYAMINE
  12. DICYCLOMINE [Concomitant]
     Active Substance: DICYCLOMINE HYDROCHLORIDE
  13. CARVEDILOL [Concomitant]
     Active Substance: CARVEDILOL
  14. APIXABAN [Concomitant]
     Active Substance: APIXABAN
  15. ENOXAPARIN [Concomitant]
     Active Substance: ENOXAPARIN

REACTIONS (4)
  - Gastric cancer [Unknown]
  - Hepatic cancer [Unknown]
  - Colorectal cancer [Unknown]
  - Neuroendocrine tumour [Unknown]
